FAERS Safety Report 8581405-4 (Version None)
Quarter: 2012Q3

REPORT INFORMATION
  Report Type: 
  Country: None (occurrence: None)
  Receive Date: 20120727
  Receipt Date: 20120712
  Transmission Date: 20120928
  Serious: Yes (Other)
  Sender: FDA-Public Use
  Company Number: TPA2012A01320

PATIENT
  Age: 71 Year
  Sex: Male

DRUGS (6)
  1. GLUCOTROL [Concomitant]
  2. ACTOS [Suspect]
     Indication: TYPE 2 DIABETES MELLITUS
     Dates: start: 20100201, end: 20110801
  3. ACTOS [Suspect]
     Indication: TYPE 2 DIABETES MELLITUS
     Dates: start: 20021001, end: 20030501
  4. ACTOS [Suspect]
     Indication: TYPE 2 DIABETES MELLITUS
     Dates: start: 20010501, end: 20020601
  5. ACTOS [Suspect]
     Indication: TYPE 2 DIABETES MELLITUS
     Dates: start: 20031101, end: 20040101
  6. JANUVIA [Concomitant]

REACTIONS (2)
  - MYOCARDIAL INFARCTION [None]
  - BLADDER CANCER [None]
